FAERS Safety Report 21831158 (Version 1)
Quarter: 2023Q1

REPORT INFORMATION
  Report Type: Spontaneous
  Country: DE (occurrence: DE)
  Receive Date: 20230106
  Receipt Date: 20230106
  Transmission Date: 20230417
  Serious: Yes (Other)
  Sender: FDA-Public Use
  Company Number: DE-BAXTER-2022BAX031279

PATIENT

DRUGS (33)
  1. BENDAMUSTINE HYDROCHLORIDE [Suspect]
     Active Substance: BENDAMUSTINE HYDROCHLORIDE
     Indication: Plasma cell myeloma
     Route: 042
  2. BORTEZOMIB [Suspect]
     Active Substance: BORTEZOMIB
     Indication: Plasma cell myeloma
     Dosage: (FIRST LINE TREATMENT)
     Route: 065
     Dates: start: 20130924, end: 20140214
  3. BORTEZOMIB [Suspect]
     Active Substance: BORTEZOMIB
     Dosage: (FOURTH LINE TREATMENT)
     Route: 065
     Dates: start: 20180511, end: 20181210
  4. BORTEZOMIB [Suspect]
     Active Substance: BORTEZOMIB
     Route: 065
  5. DEXAMETHASONE [Suspect]
     Active Substance: DEXAMETHASONE
     Indication: Plasma cell myeloma
     Dosage: DARA-KTD-PACE REGIMEN)
     Route: 065
  6. DEXAMETHASONE [Suspect]
     Active Substance: DEXAMETHASONE
     Dosage: (FIRST LINE TREATMENT)
     Route: 065
     Dates: start: 20130924, end: 20140214
  7. DEXAMETHASONE [Suspect]
     Active Substance: DEXAMETHASONE
     Dosage: (SECOND LINE TREATMENT)
     Route: 065
     Dates: start: 20160426, end: 20170707
  8. DEXAMETHASONE [Suspect]
     Active Substance: DEXAMETHASONE
     Dosage: (THIRD LINE TREATMENT)
     Route: 065
     Dates: start: 20180223, end: 20180413
  9. DEXAMETHASONE [Suspect]
     Active Substance: DEXAMETHASONE
     Dosage: (FOURTH LINE TREATMENT)
     Route: 065
     Dates: start: 20180511, end: 20181210
  10. DEXAMETHASONE [Suspect]
     Active Substance: DEXAMETHASONE
     Dosage: (FIFTH LINE TREATMENT)
     Route: 065
     Dates: start: 20190114, end: 20190715
  11. DEXAMETHASONE [Suspect]
     Active Substance: DEXAMETHASONE
     Dosage: (SIXTH LINE TREATMENT)
     Route: 065
     Dates: start: 20190812, end: 20190930
  12. DEXAMETHASONE [Suspect]
     Active Substance: DEXAMETHASONE
     Dosage: (MOST RECENT LINE TREATMENT)
     Route: 065
     Dates: start: 20221101, end: 20221122
  13. LENALIDOMIDE [Suspect]
     Active Substance: LENALIDOMIDE
     Indication: Plasma cell myeloma
     Dosage: (SECOND LINE TREATMENT)
     Route: 065
     Dates: start: 20160426, end: 20170707
  14. LENALIDOMIDE [Suspect]
     Active Substance: LENALIDOMIDE
     Dosage: (THIRD LINE TREATMENT)
     Route: 065
     Dates: start: 20180223, end: 20180413
  15. MELPHALAN [Suspect]
     Active Substance: MELPHALAN
     Indication: Plasma cell myeloma
     Dosage: FIRST LINE TREATMENT)
     Route: 065
     Dates: start: 20130924, end: 20140214
  16. ETOPOSIDE [Suspect]
     Active Substance: ETOPOSIDE
     Indication: Plasma cell myeloma
     Dosage: (DARA-KTD-PACE REGIMEN)
     Route: 065
  17. ADRIAMYCIN [Suspect]
     Active Substance: DOXORUBICIN HYDROCHLORIDE
     Indication: Plasma cell myeloma
     Dosage: (DARA-KTD-PACE REGIMEN)
     Route: 065
  18. ISATUXIMAB [Suspect]
     Active Substance: ISATUXIMAB
     Indication: Plasma cell myeloma
     Route: 065
  19. PLATINUM [Suspect]
     Active Substance: PLATINUM
     Indication: Plasma cell myeloma
     Dosage: (DARA-KTD-PACE REGIMEN)
     Route: 065
  20. THALIDOMIDE [Suspect]
     Active Substance: THALIDOMIDE
     Indication: Plasma cell myeloma
     Dosage: DARA-KTD-PACE REGIMEN)
     Route: 065
  21. POMALIDOMIDE [Suspect]
     Active Substance: POMALIDOMIDE
     Indication: Plasma cell myeloma
     Dosage: (FIFTH LINE TREATMENT)
     Route: 065
     Dates: start: 20190114, end: 20190715
  22. POMALIDOMIDE [Suspect]
     Active Substance: POMALIDOMIDE
     Dosage: (MOST RECENT LINE TREATMENT)
     Route: 065
     Dates: start: 20221101, end: 20221122
  23. VENETOCLAX [Suspect]
     Active Substance: VENETOCLAX
     Indication: Plasma cell myeloma
     Route: 065
  24. CARFILZOMIB [Suspect]
     Active Substance: CARFILZOMIB
     Indication: Plasma cell myeloma
     Dosage: (DARA-KTD-PACE REGIMEN)
     Route: 065
  25. CARFILZOMIB [Suspect]
     Active Substance: CARFILZOMIB
     Dosage: SECOND LINE TREATMENT)
     Route: 065
     Dates: start: 20160426, end: 20170707
  26. CARFILZOMIB [Suspect]
     Active Substance: CARFILZOMIB
     Dosage: (SIXTH LINE TREATMENT)
     Route: 065
     Dates: start: 20190812, end: 20190930
  27. CYCLOPHOSPHAMIDE [Suspect]
     Active Substance: CYCLOPHOSPHAMIDE
     Indication: Plasma cell myeloma
     Dosage: (DARA-KTD-PACE REGIMEN)
     Route: 065
  28. CYCLOPHOSPHAMIDE [Suspect]
     Active Substance: CYCLOPHOSPHAMIDE
     Dosage: (FIRST LINE TREATMENT)
     Route: 065
     Dates: start: 20130924, end: 20140214
  29. DARATUMUMAB [Suspect]
     Active Substance: DARATUMUMAB
     Indication: Plasma cell myeloma
     Dosage: (DARA-KTD-PACE REGIMEN)
     Route: 065
  30. DARATUMUMAB [Suspect]
     Active Substance: DARATUMUMAB
     Dosage: (THIRD LINE TREATMENT)
     Route: 065
     Dates: start: 20180223, end: 20180413
  31. DARATUMUMAB [Suspect]
     Active Substance: DARATUMUMAB
     Dosage: (FOURTH LINE TREATMENT)
     Route: 065
     Dates: start: 20180511, end: 20181210
  32. DARATUMUMAB [Suspect]
     Active Substance: DARATUMUMAB
     Dosage: (FIFTH LINE TREATMENT)
     Route: 065
     Dates: start: 20190114, end: 20190715
  33. DARATUMUMAB [Suspect]
     Active Substance: DARATUMUMAB
     Dosage: (MOST RECENT LINE TREATMENT)
     Route: 065
     Dates: start: 20221101, end: 20221122

REACTIONS (2)
  - Malignant neoplasm progression [Unknown]
  - Plasma cell myeloma refractory [Unknown]
